FAERS Safety Report 4661238-1 (Version None)
Quarter: 2005Q2

REPORT INFORMATION
  Report Type: 
  Country: None (occurrence: None)
  Receive Date: 20050511
  Receipt Date: 20050413
  Transmission Date: 20051028
  Serious: Yes (Hospitalization, Other)
  Sender: FDA-Public Use
  Company Number: GBR-2005-0001645

PATIENT
  Age: 57 Year
  Sex: Female

DRUGS (11)
  1. OXYCONTIN [Suspect]
     Indication: CANCER PAIN
     Dosage: 25 MG Q12H
     Dates: start: 20041104
  2. OXYNORM CAPSULES (OXYCODONE HYDROCHLORIDE) [Concomitant]
  3. OMEPRAZOLE [Concomitant]
  4. LETROZOLE [Concomitant]
  5. FRUSEMIDE [Concomitant]
  6. DIAZEPAM [Concomitant]
  7. DICLOFENAC SODIUM [Concomitant]
  8. QUININE SULPHATE [Concomitant]
  9. LEVOTHYROXINE SODIUM [Concomitant]
  10. ADCAL (CARBAZOCHROME) [Concomitant]
  11. GABAPENTIN [Concomitant]

REACTIONS (2)
  - PAIN IN EXTREMITY [None]
  - SPINAL CORD COMPRESSION [None]
